FAERS Safety Report 15680512 (Version 1)
Quarter: 2018Q4

REPORT INFORMATION
  Report Type: Spontaneous
  Country: US (occurrence: US)
  Receive Date: 20181202
  Receipt Date: 20181202
  Transmission Date: 20190205
  Serious: Yes (Other)
  Sender: FDA-Public Use
  Company Number: None

PATIENT
  Sex: Male

DRUGS (2)
  1. HUMIRA [Suspect]
     Active Substance: ADALIMUMAB
     Indication: PSORIATIC ARTHROPATHY
     Dosage: ?          OTHER FREQUENCY:ONCE EVERY 10 DAYS;?
     Route: 058
  2. NONE LISTED [Concomitant]

REACTIONS (5)
  - Loss of personal independence in daily activities [None]
  - Pain [None]
  - Joint stiffness [None]
  - Rash [None]
  - Insurance issue [None]
